FAERS Safety Report 21643138 (Version 1)
Quarter: 2022Q4

REPORT INFORMATION
  Report Type: Spontaneous
  Country: CZ (occurrence: CZ)
  Receive Date: 20221125
  Receipt Date: 20221125
  Transmission Date: 20230113
  Serious: Yes (Hospitalization)
  Sender: FDA-Public Use
  Company Number: CZ-SA-SAC20221124001492

PATIENT
  Age: 67 Year
  Sex: Female

DRUGS (1)
  1. KEVZARA [Suspect]
     Active Substance: SARILUMAB
     Dosage: UNK
     Route: 065

REACTIONS (2)
  - Hysteroscopy [Recovering/Resolving]
  - Uterine polypectomy [Recovering/Resolving]

NARRATIVE: CASE EVENT DATE: 20221012
